FAERS Safety Report 23977792 (Version 1)
Quarter: 2024Q2

REPORT INFORMATION
  Report Type: Spontaneous
  Country: FR (occurrence: FR)
  Receive Date: 20240614
  Receipt Date: 20240614
  Transmission Date: 20240717
  Serious: Yes (Other)
  Sender: FDA-Public Use
  Company Number: FR-BEH-2024173296

PATIENT
  Age: 60 Year
  Sex: Male

DRUGS (1)
  1. HUMAN IMMUNOGLOBULIN G [Suspect]
     Active Substance: HUMAN IMMUNOGLOBULIN G
     Indication: Autoimmune haemolytic anaemia
     Dosage: UNK
     Route: 042

REACTIONS (4)
  - Splenic artery thrombosis [Recovered/Resolved]
  - Pulmonary embolism [Recovered/Resolved]
  - Vena cava thrombosis [Recovered/Resolved]
  - Off label use [Unknown]
